FAERS Safety Report 12068288 (Version 1)
Quarter: 2016Q1

REPORT INFORMATION
  Report Type: Report from Study
  Country: JP (occurrence: JP)
  Receive Date: 20160211
  Receipt Date: 20160211
  Transmission Date: 20160526
  Serious: Yes (Other)
  Sender: FDA-Public Use
  Company Number: JP-009507513-1602JPN005429

PATIENT

DRUGS (3)
  1. MELPHALAN [Suspect]
     Active Substance: MELPHALAN
     Indication: AMYLOIDOSIS
     Dosage: ON DAYS 1-4
     Route: 065
  2. BORTEZOMIB [Suspect]
     Active Substance: BORTEZOMIB
     Indication: AMYLOIDOSIS
     Dosage: DAY1, 4, 8 AND 11 OF 28-DAY TREATMENT CYCLE AT PLANNED DOSES OF 1(DOSE LEVEL 1) AND 1.3(DOSE LEVEL 2
     Route: 065
  3. DEXAMETHASONE. [Suspect]
     Active Substance: DEXAMETHASONE
     Indication: AMYLOIDOSIS
     Dosage: ON DAYS 1, 2, 4, 5, 8, 9, 11, AND 12
     Route: 065

REACTIONS (6)
  - Leukopenia [Unknown]
  - Neuropathy peripheral [Unknown]
  - Haemoglobin decreased [Unknown]
  - Herpes zoster [Unknown]
  - Lymphopenia [Unknown]
  - Off label use [Unknown]
